FAERS Safety Report 13566095 (Version 1)
Quarter: 2017Q2

REPORT INFORMATION
  Report Type: Spontaneous
  Country: US (occurrence: US)
  Receive Date: 20170521
  Receipt Date: 20170521
  Transmission Date: 20170830
  Serious: No
  Sender: FDA-Public Use
  Company Number: US-DRREDDYS-USA/USA/16/0081045

PATIENT
  Sex: Male

DRUGS (1)
  1. ZENATANE [Suspect]
     Active Substance: ISOTRETINOIN
     Indication: PRODUCT USED FOR UNKNOWN INDICATION
     Route: 048
     Dates: start: 20160531

REACTIONS (7)
  - Pyrexia [Unknown]
  - Headache [Unknown]
  - Dry skin [Unknown]
  - Hyperhidrosis [Unknown]
  - Chills [Unknown]
  - Feeling hot [Unknown]
  - Dizziness [Unknown]
